FAERS Safety Report 7379788-6 (Version None)
Quarter: 2011Q1

REPORT INFORMATION
  Report Type: 
  Country: None (occurrence: None)
  Receive Date: 20110329
  Receipt Date: 20110322
  Transmission Date: 20110831
  Serious: Yes (Hospitalization)
  Sender: FDA-Public Use
  Company Number: CA-ASTELLAS-2010US003396

PATIENT

DRUGS (2)
  1. AMEVIVE [Suspect]
     Indication: PSORIASIS
     Dosage: 15 MG, WEEKLY
     Route: 030
     Dates: start: 20061114, end: 20070731
  2. METHOTREXATE [Concomitant]
     Indication: PSORIASIS
     Dosage: 15 MG, WEEKLY
     Route: 065

REACTIONS (1)
  - CEREBROVASCULAR ACCIDENT [None]
